FAERS Safety Report 4689433-6 (Version None)
Quarter: 2005Q2

REPORT INFORMATION
  Report Type: 
  Country: None (occurrence: None)
  Receive Date: 20050311
  Receipt Date: 20050311
  Transmission Date: 20051028
  Serious: Yes (Other)
  Sender: FDA-Public Use
  Company Number: None

PATIENT
  Age: 64 Year
  Sex: Female
  Weight: 97.5234 kg

DRUGS (1)
  1. GABAPENTIN [Suspect]

REACTIONS (2)
  - GLOSSODYNIA [None]
  - ORAL PAIN [None]
